FAERS Safety Report 7423970-6 (Version None)
Quarter: 2011Q2

REPORT INFORMATION
  Report Type: 
  Country: None (occurrence: None)
  Receive Date: 20110419
  Receipt Date: 20110404
  Transmission Date: 20111010
  Serious: Yes (Hospitalization)
  Sender: FDA-Public Use
  Company Number: B0711837A

PATIENT
  Sex: Female

DRUGS (13)
  1. MARCAINE [Concomitant]
     Route: 048
     Dates: end: 20110310
  2. THIOPENTAL SODIUM [Concomitant]
     Route: 048
  3. AKINETON [Concomitant]
     Route: 048
  4. DYNASTAT [Concomitant]
     Dosage: 40MG PER DAY
     Route: 048
     Dates: end: 20110310
  5. PERFALGAN [Concomitant]
     Dates: end: 20110310
  6. DIAZEPAM [Concomitant]
     Route: 048
  7. MIDAZOLAM [Concomitant]
     Route: 048
  8. PROPOFOL [Suspect]
     Route: 065
     Dates: start: 20110310, end: 20110310
  9. MORFIN [Concomitant]
     Route: 048
     Dates: end: 20110310
  10. ONDANSETRON [Suspect]
     Indication: PREOPERATIVE CARE
     Route: 065
     Dates: start: 20110310, end: 20110310
  11. FORTECORTIN [Concomitant]
     Dosage: 8MG PER DAY
     Route: 048
     Dates: end: 20110310
  12. KETORAX [Concomitant]
     Route: 048
  13. REMIFENTANIL [Suspect]
     Route: 065
     Dates: start: 20110310, end: 20110310

REACTIONS (3)
  - DYSTONIA [None]
  - AKATHISIA [None]
  - CHOREA [None]
